FAERS Safety Report 6148368-2 (Version None)
Quarter: 2009Q2

REPORT INFORMATION
  Report Type: 
  Country: None (occurrence: None)
  Receive Date: 20090402
  Receipt Date: 20090109
  Transmission Date: 20091009
  Serious: No
  Sender: FDA-Public Use
  Company Number: 1000004202

PATIENT
  Age: 48 Year
  Sex: Male

DRUGS (1)
  1. BYSTOLIC [Suspect]
     Dosage: 1 IN 1 D,ORAL
     Route: 048
     Dates: start: 20081101, end: 20090109

REACTIONS (2)
  - HEPATIC ENZYME INCREASED [None]
  - NIGHT SWEATS [None]
